FAERS Safety Report 5285721-3 (Version None)
Quarter: 2007Q1

REPORT INFORMATION
  Report Type: 
  Country: None (occurrence: None)
  Receive Date: 20070126
  Receipt Date: 20061206
  Transmission Date: 20070707
  Serious: Yes (Hospitalization)
  Sender: FDA-Public Use
  Company Number: 012604

PATIENT
  Age: 77 Year
  Sex: Male

DRUGS (10)
  1. PRIALT [Suspect]
     Indication: PAIN
     Dosage: 0.07 UG, ONCE/HOUR, INTRATHECAL
     Route: 037
     Dates: start: 20060101, end: 20060101
  2. HYDROMORPHONE HCL [Concomitant]
  3. CLONIDINE [Concomitant]
  4. BACLOFEN [Concomitant]
  5. ACTIQ [Concomitant]
  6. NEURONTIN [Concomitant]
  7. ASPIRIN /0002701/ (ACETYLSALICYLIC ACID) [Concomitant]
  8. PROTONIX /01263201/ (PANTOPRAZOLE) [Concomitant]
  9. TEGRETOL [Concomitant]
  10. OXYCODONE HCL [Concomitant]

REACTIONS (3)
  - CONDITION AGGRAVATED [None]
  - NAUSEA [None]
  - PAIN [None]
